FAERS Safety Report 13361762 (Version 2)
Quarter: 2017Q4

REPORT INFORMATION
  Report Type: Spontaneous
  Country: US (occurrence: US)
  Receive Date: 20170323
  Receipt Date: 20171016
  Transmission Date: 20180320
  Serious: Yes (Life-Threatening, Hospitalization, Disabling)
  Sender: FDA-Public Use
  Company Number: US-009507513-1703USA008512

PATIENT
  Age: 62 Year
  Sex: Female
  Weight: 78.01 kg

DRUGS (13)
  1. VICTRELIS [Suspect]
     Active Substance: BOCEPREVIR
     Indication: HEPATITIS C
     Dosage: UNK UNK, QD
     Dates: start: 20120128
  2. REBETOL [Suspect]
     Active Substance: RIBAVIRIN
     Indication: HEPATITIS C
     Dosage: UNK UNK, QD
     Dates: start: 20120128
  3. COZAAR [Concomitant]
     Active Substance: LOSARTAN POTASSIUM
     Dosage: UNK
  4. VITAMIN D [Concomitant]
     Active Substance: CHOLECALCIFEROL
     Indication: HYPERSENSITIVITY
     Dosage: UNK
  5. INTRON A [Suspect]
     Active Substance: INTERFERON ALFA-2B
     Indication: LIVER DISORDER
     Dosage: UNK UNK, QD
     Dates: start: 20120114, end: 20120501
  6. TIZANIDINE HYDROCHLORIDE. [Concomitant]
     Active Substance: TIZANIDINE HYDROCHLORIDE
     Dosage: UNK
  7. TRAZODONE HYDROCHLORIDE. [Concomitant]
     Active Substance: TRAZODONE HYDROCHLORIDE
     Dosage: UNK
  8. FLUOXETINE [Concomitant]
     Active Substance: FLUOXETINE HYDROCHLORIDE
     Dosage: UNK
  9. VITAMIN B (UNSPECIFIED) [Concomitant]
     Active Substance: VITAMIN B
     Indication: HYPERSENSITIVITY
     Dosage: UNK
  10. INTRON A [Suspect]
     Active Substance: INTERFERON ALFA-2B
     Indication: HEPATITIS C
  11. VICTRELIS [Suspect]
     Active Substance: BOCEPREVIR
     Indication: LIVER DISORDER
  12. REBETOL [Suspect]
     Active Substance: RIBAVIRIN
     Indication: LIVER DISORDER
  13. HYDROCHLOROTHIAZIDE. [Concomitant]
     Active Substance: HYDROCHLOROTHIAZIDE
     Dosage: UNK

REACTIONS (5)
  - Loss of consciousness [Not Recovered/Not Resolved]
  - Mental disorder [Unknown]
  - Incoherent [Not Recovered/Not Resolved]
  - Malaise [Not Recovered/Not Resolved]
  - Memory impairment [Not Recovered/Not Resolved]

NARRATIVE: CASE EVENT DATE: 201203
